FAERS Safety Report 5766610-4 (Version None)
Quarter: 2008Q2

REPORT INFORMATION
  Report Type: 
  Country: None (occurrence: None)
  Receive Date: 20080609
  Receipt Date: 20080604
  Transmission Date: 20081010
  Serious: Yes (Other)
  Sender: FDA-Public Use
  Company Number: 2008SP006975

PATIENT
  Age: 35 Year
  Sex: Female

DRUGS (5)
  1. PEG-INTRON [Suspect]
     Indication: HEPATITIS C
     Dosage: 150 MCG; QW; SC
     Route: 058
     Dates: start: 20080111, end: 20080509
  2. RIBAVIRIN [Suspect]
     Indication: HEPATITIS C
     Dosage: 1400 MG; QD; PO
     Route: 048
     Dates: start: 20080111, end: 20080509
  3. EFFEXOR [Concomitant]
  4. PHENERGAN HCL [Concomitant]
  5. AMBIEN [Concomitant]

REACTIONS (2)
  - DEHYDRATION [None]
  - VOMITING [None]
